FAERS Safety Report 24835620 (Version 1)
Quarter: 2025Q1

REPORT INFORMATION
  Report Type: Spontaneous
  Country: US (occurrence: US)
  Receive Date: 20250113
  Receipt Date: 20250113
  Transmission Date: 20250409
  Serious: No
  Sender: JOHNSON AND JOHNSON
  Company Number: US-JNJFOC-20241252887

PATIENT
  Age: 50 Year

DRUGS (1)
  1. REMICADE [Suspect]
     Active Substance: INFLIXIMAB
     Indication: Rheumatic disorder
     Route: 041

REACTIONS (2)
  - Device use error [Unknown]
  - Device dislocation [Unknown]

NARRATIVE: CASE EVENT DATE: 20241213
